FAERS Safety Report 4984580-3 (Version None)
Quarter: 2006Q2

REPORT INFORMATION
  Report Type: 
  Country: None (occurrence: None)
  Receive Date: 20060419
  Receipt Date: 20060410
  Transmission Date: 20061013
  Serious: Yes (Life-Threatening)
  Sender: FDA-Public Use
  Company Number: 0603-169

PATIENT
  Sex: Male
  Weight: 2.5 kg

DRUGS (1)
  1. CUROSURF [Suspect]
     Indication: NEONATAL RESPIRATORY DISTRESS SYNDROME
     Dosage: INTRATRACHEAL
     Route: 039
     Dates: start: 20060312

REACTIONS (6)
  - BRADYCARDIA NEONATAL [None]
  - CARDIOPULMONARY FAILURE [None]
  - NEONATAL ASPHYXIA [None]
  - NEONATAL DISORDER [None]
  - NEONATAL RESPIRATORY DISTRESS SYNDROME [None]
  - RESPIRATORY DISORDER NEONATAL [None]
